FAERS Safety Report 13673899 (Version 1)
Quarter: 2017Q2

REPORT INFORMATION
  Report Type: Spontaneous
  Country: US (occurrence: US)
  Receive Date: 20170620
  Receipt Date: 20170620
  Transmission Date: 20170830
  Serious: Yes (Other)
  Sender: FDA-Public Use
  Company Number: None

PATIENT
  Age: 62 Year
  Sex: Male
  Weight: 76.5 kg

DRUGS (8)
  1. ZOLPIDEM [Concomitant]
     Active Substance: ZOLPIDEM\ZOLPIDEM TARTRATE
  2. OMEPRAZOLE. [Concomitant]
     Active Substance: OMEPRAZOLE
  3. ZEPATIER [Suspect]
     Active Substance: ELBASVIR\GRAZOPREVIR
     Indication: HEPATITIS C
     Dosage: ?          QUANTITY:28 TABLET(S);?
     Route: 048
     Dates: start: 20170301, end: 20170620
  4. FAMOTIDINE. [Concomitant]
     Active Substance: FAMOTIDINE
  5. PROPRANOLOL [Concomitant]
     Active Substance: PROPRANOLOL HYDROCHLORIDE
  6. METEFORMIN [Concomitant]
  7. LEVEMIR [Concomitant]
     Active Substance: INSULIN DETEMIR
  8. ATORVASTATIN [Concomitant]
     Active Substance: ATORVASTATIN

REACTIONS (9)
  - Confusional state [None]
  - Aggression [None]
  - Thinking abnormal [None]
  - Insomnia [None]
  - Disorientation [None]
  - Belligerence [None]
  - Illusion [None]
  - Memory impairment [None]
  - Anxiety [None]
